FAERS Safety Report 6869188-7 (Version None)
Quarter: 2010Q3

REPORT INFORMATION
  Report Type: 
  Country: None (occurrence: None)
  Receive Date: 20100722
  Receipt Date: 20080929
  Transmission Date: 20110219
  Serious: Yes (Hospitalization)
  Sender: FDA-Public Use
  Company Number: US-PFIZER INC-2008054312

PATIENT
  Sex: Male
  Weight: 112.9 kg

DRUGS (2)
  1. CHANTIX [Suspect]
     Indication: SMOKING CESSATION THERAPY
     Dosage: INTERVAL: EVERY DAY
     Route: 048
     Dates: start: 20070801, end: 20080101
  2. CLARITIN [Concomitant]

REACTIONS (2)
  - GASTRIC ULCER [None]
  - HYPERTENSION [None]
